FAERS Safety Report 10419600 (Version 1)
Quarter: 2014Q3

REPORT INFORMATION
  Report Type: Spontaneous
  Country: ES (occurrence: None)
  Receive Date: 20140827
  Receipt Date: 20140827
  Transmission Date: 20150326
  Serious: Yes (Hospitalization)
  Sender: FDA-Public Use
  Company Number: DEP_02252_2014

PATIENT
  Sex: Male

DRUGS (7)
  1. RIVOTRIL [Concomitant]
     Active Substance: CLONAZEPAM
  2. JURNISTA [Concomitant]
     Active Substance: HYDROMORPHONE HYDROCHLORIDE
  3. ZYPREXA [Concomitant]
     Active Substance: OLANZAPINE
  4. ZYTIGA [Concomitant]
     Active Substance: ABIRATERONE ACETATE
  5. CIPRALEX [Concomitant]
     Active Substance: ESCITALOPRAM OXALATE
  6. PECFENT [Suspect]
     Active Substance: FENTANYL CITRATE
     Indication: BREAKTHROUGH PAIN
     Dosage: 100 MCG/1 BOTTEL NASAL
     Dates: start: 201308, end: 201403
  7. FORETCORTIN [Concomitant]

REACTIONS (4)
  - Anaemia [None]
  - Haemoptysis [None]
  - Drug abuse [None]
  - Nasal obstruction [None]
